FAERS Safety Report 17455966 (Version 1)
Quarter: 2020Q1

REPORT INFORMATION
  Report Type: Spontaneous
  Country: US (occurrence: US)
  Receive Date: 20200225
  Receipt Date: 20200225
  Transmission Date: 20200409
  Serious: No
  Sender: FDA-Public Use
  Company Number: US-BAYER-2020-030662

PATIENT
  Age: 29 Year
  Sex: Female

DRUGS (1)
  1. CLARITIN [Suspect]
     Active Substance: LORATADINE
     Route: 048
     Dates: start: 20200219, end: 20200219

REACTIONS (3)
  - Maternal exposure during pregnancy [None]
  - Drug ineffective [Unknown]
  - Vomiting [Unknown]
